FAERS Safety Report 14187813 (Version 2)
Quarter: 2018Q2

REPORT INFORMATION
  Report Type: Spontaneous
  Country: US (occurrence: US)
  Receive Date: 20171114
  Receipt Date: 20180404
  Transmission Date: 20180711
  Serious: No
  Sender: FDA-Public Use
  Company Number: US-BAUSCH-BL-2017-025104

PATIENT
  Sex: Male

DRUGS (1)
  1. TRETINOIN. [Suspect]
     Active Substance: TRETINOIN
     Indication: PRODUCT USED FOR UNKNOWN INDICATION
     Dosage: TRIED A HALF A PEA SIZED AMOUNT OF TRETINOIN GEL MICROSPHERE
     Route: 061

REACTIONS (4)
  - Burning sensation [Recovered/Resolved]
  - Prescription drug used without a prescription [Unknown]
  - Feeling hot [Recovered/Resolved]
  - Paraesthesia [Recovered/Resolved]
